FAERS Safety Report 5207627-8 (Version None)
Quarter: 2007Q1

REPORT INFORMATION
  Report Type: 
  Country: None (occurrence: None)
  Receive Date: 20070112
  Receipt Date: 20070102
  Transmission Date: 20070707
  Serious: Yes (Hospitalization, Other)
  Sender: FDA-Public Use
  Company Number: US-PFIZER INC-2006041218

PATIENT
  Sex: Female

DRUGS (7)
  1. NEURONTIN [Suspect]
     Indication: FIBROMYALGIA
     Dates: start: 20020802, end: 20031110
  2. IMIPRAMINE [Suspect]
  3. LORAZEPAM [Concomitant]
  4. ZITHROMAX [Concomitant]
  5. TOURO EX [Concomitant]
  6. AMITRIPTYLINE HCL [Concomitant]
  7. NEXIUM [Concomitant]

REACTIONS (3)
  - DRUG INEFFECTIVE [None]
  - OVERDOSE [None]
  - SUICIDE ATTEMPT [None]
